FAERS Safety Report 15255638 (Version 6)
Quarter: 2018Q3

REPORT INFORMATION
  Report Type: Spontaneous
  Country: IT (occurrence: IT)
  Receive Date: 20180808
  Receipt Date: 20180906
  Transmission Date: 20181010
  Serious: Yes (Hospitalization)
  Sender: FDA-Public Use
  Company Number: PHHY2018IT064039

PATIENT
  Age: 24 Year
  Sex: Female
  Weight: 50 kg

DRUGS (3)
  1. BRUFEN [Suspect]
     Active Substance: IBUPROFEN
     Indication: TOOTHACHE
     Dosage: 5400 MG, (TOTAL)
     Route: 048
     Dates: start: 20180626, end: 20180626
  2. VOLTFAST [Suspect]
     Active Substance: DICLOFENAC
     Indication: TOOTHACHE
     Dosage: 250 MG, TOTAL
     Route: 048
     Dates: start: 20180626
  3. AMOXICILLIN AND CLAVULANATE POTASSIUM [Suspect]
     Active Substance: AMOXICILLIN\CLAVULANATE POTASSIUM
     Indication: TOOTHACHE
     Dosage: 7 G, TOTAL
     Route: 048
     Dates: start: 20180626, end: 20180626

REACTIONS (2)
  - Medication error [Recovering/Resolving]
  - Abdominal pain upper [Recovering/Resolving]

NARRATIVE: CASE EVENT DATE: 20180626
